FAERS Safety Report 4634540-7 (Version None)
Quarter: 2005Q2

REPORT INFORMATION
  Report Type: 
  Country: None (occurrence: None)
  Receive Date: 20050413
  Receipt Date: 20050408
  Transmission Date: 20051028
  Serious: Yes (Other)
  Sender: FDA-Public Use
  Company Number: DE-MERCK-0504DEU00061

PATIENT
  Age: 45 Year
  Sex: Male

DRUGS (8)
  1. VIOXX [Suspect]
     Route: 048
     Dates: start: 20010101, end: 20050112
  2. IBUPROFEN [Concomitant]
     Route: 048
     Dates: start: 19940101
  3. DICLOFENAC [Concomitant]
     Route: 048
  4. DICLOFENAC [Concomitant]
     Route: 061
  5. NITROGLYCERIN [Concomitant]
     Route: 065
  6. GLIMEPIRIDE [Concomitant]
     Route: 048
  7. METOPROLOL [Concomitant]
     Route: 048
  8. ATORVASTATIN CALCIUM [Concomitant]
     Route: 048

REACTIONS (4)
  - ARRHYTHMIA [None]
  - CARDIOVASCULAR DISORDER [None]
  - HYPERTENSION [None]
  - MYOCARDIAL INFARCTION [None]
